FAERS Safety Report 5904274-7 (Version None)
Quarter: 2008Q3

REPORT INFORMATION
  Report Type: 
  Country: None (occurrence: None)
  Receive Date: 20080909
  Receipt Date: 20080610
  Transmission Date: 20090109
  Serious: Yes (Death)
  Sender: FDA-Public Use
  Company Number: 163-20785-08031636

PATIENT
  Age: 60 Year
  Sex: Male

DRUGS (3)
  1. THALOMID [Suspect]
     Indication: COLON CANCER
     Dosage: 300 MG, DAILY, ORAL ; 400 MG, 2 IN 1 D, ORAL ; 200 MG, 1 IN 1 D, ORAL
     Route: 048
     Dates: start: 20030623, end: 20050501
  2. THALOMID [Suspect]
     Indication: COLON CANCER
     Dosage: 300 MG, DAILY, ORAL ; 400 MG, 2 IN 1 D, ORAL ; 200 MG, 1 IN 1 D, ORAL
     Route: 048
     Dates: start: 20050516, end: 20060901
  3. THALOMID [Suspect]
     Indication: COLON CANCER
     Dosage: 300 MG, DAILY, ORAL ; 400 MG, 2 IN 1 D, ORAL ; 200 MG, 1 IN 1 D, ORAL
     Route: 048
     Dates: start: 20060911, end: 20070101

REACTIONS (1)
  - GASTROINTESTINAL PERFORATION [None]
